FAERS Safety Report 6679801-5 (Version None)
Quarter: 2010Q2

REPORT INFORMATION
  Report Type: 
  Country: None (occurrence: None)
  Receive Date: 20100413
  Receipt Date: 20090901
  Transmission Date: 20101027
  Serious: No
  Sender: FDA-Public Use
  Company Number: US-ASTRAZENECA-2009SE10968

PATIENT

DRUGS (4)
  1. ATENOLOL [Suspect]
  2. TOPROL-XL [Suspect]
     Route: 048
  3. LISINOPRIL [Suspect]
  4. COREG [Suspect]

REACTIONS (4)
  - COUGH [None]
  - DIZZINESS [None]
  - FATIGUE [None]
  - FEELING ABNORMAL [None]
